FAERS Safety Report 8707819 (Version 2)
Quarter: 2013Q4

REPORT INFORMATION
  Report Type: Spontaneous
  Country: DE (occurrence: DE)
  Receive Date: 20120806
  Receipt Date: 20131108
  Transmission Date: 20140711
  Serious: Yes (Hospitalization)
  Sender: FDA-Public Use
  Company Number: DE-009507513-1208DEU000613

PATIENT
  Age: 23 Year
  Sex: Female

DRUGS (2)
  1. NUVARING [Suspect]
     Indication: CONTRACEPTION
     Dosage: 1 DF, UNK
     Route: 067
     Dates: start: 2006, end: 201205
  2. NUVARING [Suspect]
     Dosage: 1 DF, UNK
     Route: 067
     Dates: start: 201206

REACTIONS (1)
  - Bladder pain [Recovered/Resolved]
